FAERS Safety Report 19865121 (Version 2)
Quarter: 2021Q3

REPORT INFORMATION
  Report Type: Spontaneous
  Country: US (occurrence: US)
  Receive Date: 20210921
  Receipt Date: 20210928
  Transmission Date: 20211014
  Serious: No
  Sender: FDA-Public Use
  Company Number: US-PFIZER INC-202101147080

PATIENT
  Age: 69 Year
  Sex: Female
  Weight: 71.67 kg

DRUGS (3)
  1. DILTIAZEM. [Concomitant]
     Active Substance: DILTIAZEM
     Indication: BLOOD PRESSURE ABNORMAL
     Dosage: UNK
  2. PREMARIN [Suspect]
     Active Substance: ESTROGENS, CONJUGATED
     Indication: MENOPAUSE
     Dosage: 0.5, 3X/ WEEK
     Dates: start: 20210820, end: 20210823
  3. PREMARIN [Suspect]
     Active Substance: ESTROGENS, CONJUGATED
     Indication: URINARY TRACT INFECTION

REACTIONS (2)
  - Off label use [Unknown]
  - Vulvovaginal rash [Unknown]

NARRATIVE: CASE EVENT DATE: 20210820
